APPROVED DRUG PRODUCT: WILPO
Active Ingredient: PHENTERMINE HYDROCHLORIDE
Strength: 8MG **Federal Register determination that product was not discontinued or withdrawn for safety or effectiveness reasons**
Dosage Form/Route: TABLET;ORAL
Application: N012737 | Product #001
Applicant: SANDOZ CONSUMER HEALTH CARE GROUP DIV SANDOZ PHARMACEUTICALS CORP
Approved: Approved Prior to Jan 1, 1982 | RLD: Yes | RS: No | Type: DISCN